FAERS Safety Report 15259803 (Version 1)
Quarter: 2018Q3

REPORT INFORMATION
  Report Type: Spontaneous
  Country: US (occurrence: US)
  Receive Date: 20180719
  Receipt Date: 20180719
  Transmission Date: 20181010
  Serious: Yes (Hospitalization)
  Sender: FDA-Public Use
  Company Number: None

PATIENT
  Age: 78 Year
  Sex: Male
  Weight: 127.01 kg

DRUGS (2)
  1. GEMCITABINE [Suspect]
     Active Substance: GEMCITABINE\GEMCITABINE HYDROCHLORIDE
     Indication: ADENOCARCINOMA
     Route: 042
     Dates: start: 20180329, end: 20180329
  2. PACLITAXEL. [Suspect]
     Active Substance: PACLITAXEL
     Indication: ADENOCARCINOMA
     Route: 042
     Dates: start: 20180329, end: 20180329

REACTIONS (4)
  - Nausea [None]
  - Dehydration [None]
  - Vomiting [None]
  - Medical device site pain [None]

NARRATIVE: CASE EVENT DATE: 20180401
